FAERS Safety Report 7824908-X (Version None)
Quarter: 2011Q4

REPORT INFORMATION
  Report Type: 
  Country: None (occurrence: None)
  Receive Date: 20111019
  Receipt Date: 20110222
  Transmission Date: 20120403
  Serious: No
  Sender: FDA-Public Use
  Company Number: US-BRISTOL-MYERS SQUIBB COMPANY-15561301

PATIENT
  Age: 65 Year
  Sex: Male

DRUGS (2)
  1. KLONOPIN [Concomitant]
     Indication: RESTLESS LEGS SYNDROME
  2. AVALIDE [Suspect]
     Dosage: 1DF:150/12.5MG STARTED 5 YEARS AGO

REACTIONS (1)
  - PAIN [None]
